FAERS Safety Report 8174833-2 (Version None)
Quarter: 2012Q1

REPORT INFORMATION
  Report Type: 
  Country: None (occurrence: None)
  Receive Date: 20120227
  Receipt Date: 20120201
  Transmission Date: 20120608
  Serious: Yes (Other)
  Sender: FDA-Public Use
  Company Number: 2011SP057704

PATIENT
  Age: 54 Year
  Sex: Female

DRUGS (2)
  1. SUNITINIB MALATE [Concomitant]
  2. TEMODAL [Suspect]
     Indication: PHAEOCHROMOCYTOMA

REACTIONS (2)
  - TOXICITY TO VARIOUS AGENTS [None]
  - NEUTROPENIA [None]
